FAERS Safety Report 11117036 (Version 1)
Quarter: 2015Q2

REPORT INFORMATION
  Report Type: Spontaneous
  Country: US (occurrence: US)
  Receive Date: 20150515
  Receipt Date: 20150515
  Transmission Date: 20150821
  Serious: No
  Sender: FDA-Public Use
  Company Number: US-PFIZER INC-2015155647

PATIENT
  Age: 61 Year
  Sex: Female

DRUGS (4)
  1. TALACEN [Suspect]
     Active Substance: ACETAMINOPHEN\PENTAZOCINE HYDROCHLORIDE
     Dosage: UNK
  2. MOBIC [Suspect]
     Active Substance: MELOXICAM
     Dosage: UNK
  3. ULTRAM [Suspect]
     Active Substance: TRAMADOL HYDROCHLORIDE
     Dosage: UNK
  4. NEURONTIN [Suspect]
     Active Substance: GABAPENTIN
     Dosage: UNK

REACTIONS (2)
  - Drug hypersensitivity [Unknown]
  - Pruritus [Unknown]
